FAERS Safety Report 12204321 (Version 4)
Quarter: 2016Q3

REPORT INFORMATION
  Report Type: Spontaneous
  Country: BR (occurrence: BR)
  Receive Date: 20160323
  Receipt Date: 20160718
  Transmission Date: 20161109
  Serious: Yes (Other)
  Sender: FDA-Public Use
  Company Number: BR-PFIZER INC-2016164447

PATIENT
  Sex: Female

DRUGS (1)
  1. LYRICA [Suspect]
     Active Substance: PREGABALIN
     Dosage: 75 MG, 1X/DAY (AT NIGHT)
     Route: 048

REACTIONS (8)
  - Feeling hot [Unknown]
  - Paraesthesia [Unknown]
  - Panic reaction [Unknown]
  - Palpitations [Unknown]
  - Asphyxia [Unknown]
  - Dry mouth [Unknown]
  - Dysgeusia [Unknown]
  - Cold sweat [Unknown]
